FAERS Safety Report 25196426 (Version 1)
Quarter: 2025Q2

REPORT INFORMATION
  Report Type: Spontaneous
  Country: ES (occurrence: ES)
  Receive Date: 20250415
  Receipt Date: 20250415
  Transmission Date: 20250717
  Serious: Yes (Life-Threatening, Hospitalization)
  Sender: MERCK SHARP AND DOHME
  Company Number: None

PATIENT
  Age: 50 Year
  Sex: Female

DRUGS (3)
  1. KEYTRUDA [Interacting]
     Active Substance: PEMBROLIZUMAB
     Indication: Triple negative breast cancer
     Dosage: 2MG/KG EVERY 21 DAYS, CONCENTRATION: 25 MG/ML
     Route: 042
     Dates: start: 20250314, end: 20250326
  2. CYCLOPHOSPHAMIDE [Interacting]
     Active Substance: CYCLOPHOSPHAMIDE
     Indication: Triple negative breast cancer
     Route: 042
     Dates: start: 20250314, end: 20250326
  3. DOXORUBICIN [Interacting]
     Active Substance: DOXORUBICIN
     Indication: Triple negative breast cancer
     Dosage: 60MG/M2 EVERY 21 DAYS
     Route: 042
     Dates: start: 20250314, end: 20250326

REACTIONS (2)
  - Agranulocytosis [Recovered/Resolved]
  - Stomatitis [Recovering/Resolving]

NARRATIVE: CASE EVENT DATE: 20250326
